FAERS Safety Report 7829323-0 (Version None)
Quarter: 2011Q4

REPORT INFORMATION
  Report Type: 
  Country: None (occurrence: None)
  Receive Date: 20111020
  Receipt Date: 20111019
  Transmission Date: 20120403
  Serious: Yes (Death, Hospitalization)
  Sender: FDA-Public Use
  Company Number: US-ABBOTT-11P-163-0866370-00

PATIENT
  Sex: Male

DRUGS (10)
  1. INCIVEK [Concomitant]
     Indication: HEPATITIS C
     Dates: end: 20111017
  2. LUVOX [Concomitant]
     Indication: ATTENTION DEFICIT/HYPERACTIVITY DISORDER
     Dates: end: 20111017
  3. LUVOX [Concomitant]
     Indication: OBSESSIVE-COMPULSIVE DISORDER
  4. ADDERALL 5 [Concomitant]
     Indication: CEREBRAL PALSY
     Dates: end: 20111017
  5. ATENOLOL [Concomitant]
     Indication: HYPERTENSION
     Dates: end: 20111017
  6. FOSAMAX [Concomitant]
     Indication: OSTEOPENIA
     Dates: end: 20111017
  7. VITAMIN D [Concomitant]
     Indication: VITAMIN SUPPLEMENTATION
     Dates: end: 20111017
  8. RIBOVIRON [Concomitant]
     Indication: HEPATITIS C
     Dates: end: 20111017
  9. HUMIRA [Suspect]
     Indication: CROHN'S DISEASE
     Dates: end: 20111017
  10. PEG-INTRON [Concomitant]
     Indication: HEPATITIS C
     Dates: end: 20111017

REACTIONS (3)
  - NASOPHARYNGITIS [None]
  - PNEUMONIA [None]
  - ACUTE RESPIRATORY DISTRESS SYNDROME [None]
